FAERS Safety Report 5610744-1 (Version None)
Quarter: 2008Q1

REPORT INFORMATION
  Report Type: 
  Country: None (occurrence: None)
  Receive Date: 20080201
  Receipt Date: 20080125
  Transmission Date: 20080703
  Serious: Yes (Disabling, Other)
  Sender: FDA-Public Use
  Company Number: PHBS2008FI01310

PATIENT
  Age: 77 Year
  Sex: Female

DRUGS (1)
  1. MIACALCIN [Suspect]
     Indication: OSTEOPOROSIS
     Route: 045

REACTIONS (2)
  - PHYSICAL DISABILITY [None]
  - SPINAL CORD INJURY [None]
